FAERS Safety Report 18899776 (Version 2)
Quarter: 2021Q1

REPORT INFORMATION
  Report Type: Spontaneous
  Country: US (occurrence: US)
  Receive Date: 20210216
  Receipt Date: 20210304
  Transmission Date: 20210420
  Serious: Yes (Hospitalization, Other)
  Sender: FDA-Public Use
  Company Number: US-ROCHE-2767419

PATIENT
  Age: 69 Year
  Sex: Female
  Weight: 113.5 kg

DRUGS (11)
  1. DILTIZEM [Concomitant]
  2. LOSARTAN. [Concomitant]
     Active Substance: LOSARTAN
  3. PREDNISONE. [Concomitant]
     Active Substance: PREDNISONE
  4. LIVALO [Concomitant]
     Active Substance: PITAVASTATIN CALCIUM
  5. ACTEMRA [Suspect]
     Active Substance: TOCILIZUMAB
  6. TRULICITY [Concomitant]
     Active Substance: DULAGLUTIDE
  7. ACTEMRA [Suspect]
     Active Substance: TOCILIZUMAB
  8. XARELTO [Concomitant]
     Active Substance: RIVAROXABAN
  9. CETRIZINE [Concomitant]
     Active Substance: CETIRIZINE HYDROCHLORIDE
  10. ACTEMRA [Suspect]
     Active Substance: TOCILIZUMAB
     Indication: GIANT CELL ARTERITIS
     Dosage: 162 MG/0.9 ML
     Route: 058
     Dates: start: 2018
  11. AZOPT [Concomitant]
     Active Substance: BRINZOLAMIDE
     Dosage: 2 DROPS

REACTIONS (5)
  - Blindness unilateral [Unknown]
  - Visual field defect [Unknown]
  - Quadrantanopia [Unknown]
  - Altered visual depth perception [Unknown]
  - Cellulitis [Recovered/Resolved]

NARRATIVE: CASE EVENT DATE: 202001
